FAERS Safety Report 10209980 (Version 1)
Quarter: 2014Q2

REPORT INFORMATION
  Report Type: Report from Study
  Country: GR (occurrence: GR)
  Receive Date: 20140602
  Receipt Date: 20140602
  Transmission Date: 20141212
  Serious: Yes (Other)
  Sender: FDA-Public Use
  Company Number: GR-ROCHE-1410112

PATIENT
  Age: 62 Year
  Sex: Male

DRUGS (1)
  1. MABTHERA [Suspect]
     Indication: RHEUMATOID ARTHRITIS
     Dosage: 6 MONTHS
     Route: 042
     Dates: start: 20130415, end: 20140520

REACTIONS (2)
  - Dermatitis [Recovered/Resolved]
  - Bradycardia [Recovered/Resolved]
